FAERS Safety Report 9456389 (Version 1)
Quarter: 2013Q3

REPORT INFORMATION
  Report Type: Spontaneous
  Country: US (occurrence: US)
  Receive Date: 20130813
  Receipt Date: 20130813
  Transmission Date: 20140515
  Serious: No
  Sender: FDA-Public Use
  Company Number: US-B.I. PHARMACEUTICALS,INC./RIDGEFIELD-2013-BI-23757BP

PATIENT
  Age: 73 Year
  Sex: Male

DRUGS (10)
  1. SPIRIVA [Suspect]
     Indication: CHRONIC OBSTRUCTIVE PULMONARY DISEASE
     Dosage: 18 MCG
     Route: 048
  2. CARVEDILOL [Concomitant]
     Dosage: 50 MG
     Route: 048
  3. SOTALOL [Concomitant]
     Dosage: 160 MG
     Route: 048
  4. FUROSEMIDE [Concomitant]
     Dosage: 40 MG
     Route: 048
  5. METFORMIN [Concomitant]
     Dosage: 1000 MG
     Route: 048
  6. AMLODIPINE/BENAZEPRIL [Concomitant]
     Route: 048
  7. DIGOXIN [Concomitant]
     Dosage: 0.25 MG
     Route: 048
  8. SIMVASTATIN [Concomitant]
     Dosage: 20 MG
     Route: 048
  9. FERROUS SULFATE [Concomitant]
     Route: 048
  10. VITAMIN D3 [Concomitant]
     Dosage: 1000 U
     Route: 048

REACTIONS (2)
  - Abdominal pain upper [Not Recovered/Not Resolved]
  - Incorrect route of drug administration [Recovered/Resolved]
